FAERS Safety Report 6411399-9 (Version None)
Quarter: 2009Q4

REPORT INFORMATION
  Report Type: 
  Country: None (occurrence: None)
  Receive Date: 20091023
  Receipt Date: 20091013
  Transmission Date: 20100525
  Serious: Yes (Other)
  Sender: FDA-Public Use
  Company Number: CA-JNJFOC-20090204964

PATIENT
  Sex: Male
  Weight: 65 kg

DRUGS (3)
  1. REMICADE [Suspect]
     Indication: ANKYLOSING SPONDYLITIS
     Dosage: TOTAL OF 18 DOSES
     Route: 042
  2. INDOMETHACIN [Concomitant]
  3. TYLENOL W/ CODEINE [Concomitant]

REACTIONS (6)
  - CHEST DISCOMFORT [None]
  - DIZZINESS [None]
  - DYSPNOEA [None]
  - MEMORY IMPAIRMENT [None]
  - NAUSEA [None]
  - OVERDOSE [None]
